FAERS Safety Report 6318777-7 (Version None)
Quarter: 2009Q3

REPORT INFORMATION
  Report Type: 
  Country: None (occurrence: None)
  Receive Date: 20090821
  Receipt Date: 20090811
  Transmission Date: 20100115
  Serious: Yes (Other)
  Sender: FDA-Public Use
  Company Number: FI-JNJFOC-20090803455

PATIENT
  Age: 8 Year
  Sex: Female

DRUGS (2)
  1. REMICADE [Suspect]
     Indication: IRITIS
     Route: 042
  2. REMICADE [Suspect]
     Indication: JUVENILE ARTHRITIS
     Route: 042

REACTIONS (3)
  - DERMATITIS PSORIASIFORM [None]
  - PERITONSILLAR ABSCESS [None]
  - PERTUSSIS [None]
